FAERS Safety Report 9896929 (Version 2)
Quarter: 2014Q1

REPORT INFORMATION
  Report Type: Report from Study
  Country: AU (occurrence: AU)
  Receive Date: 20140214
  Receipt Date: 20140220
  Transmission Date: 20141002
  Serious: Yes (Hospitalization, Other)
  Sender: FDA-Public Use
  Company Number: AU-ROCHE-1343938

PATIENT
  Age: 56 Year
  Sex: Female

DRUGS (1)
  1. ACTEMRA [Suspect]
     Indication: RHEUMATOID ARTHRITIS
     Dosage: ONGOING
     Route: 042
     Dates: start: 20100409

REACTIONS (6)
  - Chest pain [Recovered/Resolved]
  - Chest discomfort [Unknown]
  - Tachyarrhythmia [Unknown]
  - Bradyarrhythmia [Unknown]
  - Nausea [Unknown]
  - Pain in jaw [Unknown]
